FAERS Safety Report 8791251 (Version 1)
Quarter: 2012Q4

REPORT INFORMATION
  Report Type: Spontaneous
  Country: US (occurrence: None)
  Receive Date: 20120914
  Receipt Date: 20120914
  Transmission Date: 20130627
  Serious: No
  Sender: FDA-Public Use
  Company Number: None

PATIENT
  Age: 59 Year
  Sex: Female

DRUGS (2)
  1. ZOLPIDEM [Suspect]
     Dosage: very rarely for 3 years
prn 047
  2. ZOLPIDEM [Suspect]

REACTIONS (2)
  - Inappropriate schedule of drug administration [None]
  - Road traffic accident [None]
